FAERS Safety Report 21670398 (Version 4)
Quarter: 2023Q1

REPORT INFORMATION
  Report Type: Report from Study
  Country: US (occurrence: US)
  Receive Date: 20221201
  Receipt Date: 20230312
  Transmission Date: 20230417
  Serious: No
  Sender: FDA-Public Use
  Company Number: US-002147023-NVSC2022US278965

PATIENT
  Age: 59 Year
  Sex: Male

DRUGS (2)
  1. ENTRESTO [Suspect]
     Active Substance: SACUBITRIL\VALSARTAN
     Indication: Product used for unknown indication
     Dosage: 1 DOSAGE FORM, BID (49/51MG)
     Route: 065
     Dates: start: 202209
  2. ENTRESTO [Suspect]
     Active Substance: SACUBITRIL\VALSARTAN
     Dosage: UNK (INCREASED DOSE)
     Route: 065

REACTIONS (4)
  - Weight fluctuation [Unknown]
  - Somnolence [Unknown]
  - Dyspnoea [Unknown]
  - Hypertension [Unknown]

NARRATIVE: CASE EVENT DATE: 20220901
